FAERS Safety Report 23988910 (Version 1)
Quarter: 2024Q2

REPORT INFORMATION
  Report Type: Other
  Country: CN (occurrence: CN)
  Receive Date: 20240619
  Receipt Date: 20240619
  Transmission Date: 20240716
  Serious: Yes (Death)
  Sender: FDA-Public Use
  Company Number: CN-Bion-013271

PATIENT
  Age: 0 Year
  Sex: Male

DRUGS (6)
  1. VALPROIC ACID [Suspect]
     Active Substance: VALPROIC ACID
     Indication: Early infantile epileptic encephalopathy with burst-suppression
  2. NITRAZEPAM [Concomitant]
     Active Substance: NITRAZEPAM
     Indication: Early infantile epileptic encephalopathy with burst-suppression
  3. CORTICOTROPIN [Concomitant]
     Active Substance: CORTICOTROPIN
     Indication: Early infantile epileptic encephalopathy with burst-suppression
  4. VALPROIC ACID [Suspect]
     Active Substance: VALPROIC ACID
     Indication: Infantile spasms
  5. NITRAZEPAM [Concomitant]
     Active Substance: NITRAZEPAM
     Indication: Infantile spasms
  6. CORTICOTROPIN [Concomitant]
     Active Substance: CORTICOTROPIN
     Indication: Infantile spasms

REACTIONS (1)
  - Drug ineffective for unapproved indication [Fatal]
